FAERS Safety Report 22377785 (Version 2)
Quarter: 2023Q2

REPORT INFORMATION
  Report Type: Report from Study
  Country: BR (occurrence: BR)
  Receive Date: 20230529
  Receipt Date: 20230612
  Transmission Date: 20230721
  Serious: Yes (Disabling, Other)
  Sender: FDA-Public Use
  Company Number: BR-TAKEDA-2023TUS042236

PATIENT
  Age: 60 Year
  Sex: Female
  Weight: 37 kg

DRUGS (1)
  1. VEDOLIZUMAB [Suspect]
     Active Substance: VEDOLIZUMAB
     Indication: Crohn^s disease
     Dosage: 300 MILLIGRAM
     Route: 042
     Dates: start: 202211

REACTIONS (9)
  - Disability [Unknown]
  - Malaise [Unknown]
  - Viral infection [Unknown]
  - Emphysema [Unknown]
  - Memory impairment [Unknown]
  - Abdominal discomfort [Unknown]
  - Product availability issue [Unknown]
  - Product dose omission issue [Unknown]
  - Vomiting [Unknown]

NARRATIVE: CASE EVENT DATE: 20230411
